FAERS Safety Report 12303920 (Version 1)
Quarter: 2016Q2

REPORT INFORMATION
  Report Type: Spontaneous
  Country: US (occurrence: None)
  Receive Date: 20160425
  Receipt Date: 20160425
  Transmission Date: 20160815
  Serious: No
  Sender: FDA-Public Use
  Company Number: None

PATIENT
  Age: 58 Year
  Sex: Female

DRUGS (37)
  1. ENBREL [Suspect]
     Active Substance: ETANERCEPT
     Indication: RHEUMATOID ARTHRITIS
     Route: 058
     Dates: start: 20090508
  2. FLUCONAZOLE. [Concomitant]
     Active Substance: FLUCONAZOLE
  3. WELLBUTRIN [Concomitant]
     Active Substance: BUPROPION HYDROCHLORIDE
  4. LUVOX [Concomitant]
     Active Substance: FLUVOXAMINE MALEATE
  5. BUT/ASA/CAF [Concomitant]
  6. ABILIFY [Concomitant]
     Active Substance: ARIPIPRAZOLE
  7. LUNESTA [Concomitant]
     Active Substance: ESZOPICLONE
  8. VALACYCLOVIR [Concomitant]
     Active Substance: VALACYCLOVIR HYDROCHLORIDE
  9. VAGIFEM [Concomitant]
     Active Substance: ESTRADIOL
  10. ALPRAZOLAM. [Concomitant]
     Active Substance: ALPRAZOLAM
  11. FOLIC ACID. [Concomitant]
     Active Substance: FOLIC ACID
  12. DIAZEPAM. [Concomitant]
     Active Substance: DIAZEPAM
  13. ASTELIN [Concomitant]
     Active Substance: AZELASTINE HYDROCHLORIDE
  14. IMITREX [Concomitant]
     Active Substance: SUMATRIPTAN SUCCINATE
  15. LEFLUNOMIDE. [Concomitant]
     Active Substance: LEFLUNOMIDE
  16. VITAMIN D [Concomitant]
     Active Substance: CHOLECALCIFEROL
  17. CALCIUM + D [Concomitant]
     Active Substance: CALCIUM\VITAMIN D
  18. NYSTATIN. [Concomitant]
     Active Substance: NYSTATIN
  19. LOTEMAX [Concomitant]
     Active Substance: LOTEPREDNOL ETABONATE
  20. SMZ-TMP [Concomitant]
     Active Substance: SULFAMETHOXAZOLE\TRIMETHOPRIM
  21. METRONIDAZOLE. [Concomitant]
     Active Substance: METRONIDAZOLE
  22. CLOBETASOL [Concomitant]
     Active Substance: CLOBETASOL
  23. COLCHICINE. [Concomitant]
     Active Substance: COLCHICINE
  24. SUMATRIPTAN. [Concomitant]
     Active Substance: SUMATRIPTAN
  25. VENLAFAXINE [Concomitant]
     Active Substance: VENLAFAXINE HYDROCHLORIDE
  26. FOLIC ACID. [Concomitant]
     Active Substance: FOLIC ACID
  27. PAROXETINE. [Concomitant]
     Active Substance: PAROXETINE
  28. DOXYCYCLINE. [Concomitant]
     Active Substance: DOXYCYCLINE
  29. CLOTRIM/BETA [Concomitant]
  30. ARTHROTEC [Concomitant]
     Active Substance: DICLOFENAC SODIUM\MISOPROSTOL
  31. METHOTREXATE [Concomitant]
     Active Substance: METHOTREXATE
  32. NEXIUM [Concomitant]
     Active Substance: ESOMEPRAZOLE MAGNESIUM
  33. TINDAMAX [Concomitant]
     Active Substance: TINIDAZOLE
  34. AMOX/K CLAV [Concomitant]
     Active Substance: AMOXICILLIN\CLAVULANATE POTASSIUM
  35. PROVIGIL [Concomitant]
     Active Substance: MODAFINIL
  36. TRAMADOL. [Concomitant]
     Active Substance: TRAMADOL
  37. CLIMARA [Concomitant]
     Active Substance: ESTRADIOL

REACTIONS (1)
  - Rheumatoid arthritis [None]

NARRATIVE: CASE EVENT DATE: 201604
